FAERS Safety Report 19570120 (Version 2)
Quarter: 2021Q3

REPORT INFORMATION
  Report Type: Spontaneous
  Country: DE (occurrence: DE)
  Receive Date: 20210716
  Receipt Date: 20210804
  Transmission Date: 20211014
  Serious: Yes (Death, Hospitalization, Other)
  Sender: FDA-Public Use
  Company Number: DE-BRISTOL-MYERS SQUIBB COMPANY-BMS-2021-068829

PATIENT
  Age: 82 Year
  Sex: Female
  Weight: 66 kg

DRUGS (1)
  1. ELIQUIS [Suspect]
     Active Substance: APIXABAN
     Indication: CEREBROVASCULAR ACCIDENT PROPHYLAXIS
     Dosage: 2.5 MILLIGRAM, BID
     Route: 065
     Dates: start: 201701, end: 20210517

REACTIONS (20)
  - Anaemia macrocytic [Fatal]
  - Hypertensive cardiomyopathy [Fatal]
  - Retinal artery occlusion [Unknown]
  - Kyphosis [Unknown]
  - Colitis microscopic [Fatal]
  - Ascites [Unknown]
  - Multiple sclerosis [Unknown]
  - Depression [Unknown]
  - Pleural effusion [Unknown]
  - Hypocalcaemia [Unknown]
  - Hypothyroidism [Unknown]
  - Hiatus hernia [Unknown]
  - Pulmonary arterial hypertension [Unknown]
  - Cardiac failure [Fatal]
  - Sepsis [Unknown]
  - Skin haemorrhage [Fatal]
  - General physical health deterioration [Unknown]
  - Haematoma [Unknown]
  - Mitral valve sclerosis [Unknown]
  - Gastrooesophageal reflux disease [Unknown]

NARRATIVE: CASE EVENT DATE: 20210408
